FAERS Safety Report 17016385 (Version 1)
Quarter: 2019Q4

REPORT INFORMATION
  Report Type: Spontaneous
  Country: AR (occurrence: AR)
  Receive Date: 20191111
  Receipt Date: 20191111
  Transmission Date: 20200122
  Serious: Yes (Hospitalization, Other)
  Sender: FDA-Public Use
  Company Number: NVSC2019AR027345

PATIENT
  Age: 42 Year
  Sex: Female

DRUGS (3)
  1. MYCOPHENOLATE [Suspect]
     Active Substance: MYCOPHENOLIC ACID
     Indication: RENAL TRANSPLANT
     Dosage: 1080 MG, UNK
     Route: 065
  2. MEPREDNISONE [Suspect]
     Active Substance: MEPREDNISONE
     Indication: RENAL TRANSPLANT
     Dosage: 4 MG, UNK
     Route: 065
  3. TACROLIMUS. [Suspect]
     Active Substance: TACROLIMUS
     Indication: RENAL TRANSPLANT
     Dosage: 2 MG, UNK
     Route: 065

REACTIONS (10)
  - Cough [Unknown]
  - Pyrexia [Unknown]
  - Transplant rejection [Unknown]
  - Dyspnoea [Not Recovered/Not Resolved]
  - Anaemia [Unknown]
  - Leukocytosis [Unknown]
  - Renal impairment [Recovering/Resolving]
  - Chlamydial infection [Unknown]
  - Cytomegalovirus infection [Unknown]
  - Sinus tachycardia [Unknown]
